FAERS Safety Report 15113426 (Version 2)
Quarter: 2018Q3

REPORT INFORMATION
  Report Type: Spontaneous
  Country: US (occurrence: US)
  Receive Date: 20180706
  Receipt Date: 20180808
  Transmission Date: 20181010
  Serious: No
  Sender: FDA-Public Use
  Company Number: US-TAKEDA-2018MPI008707

PATIENT
  Age: 67 Year
  Sex: Female
  Weight: 104.31 kg

DRUGS (1)
  1. NINLARO [Suspect]
     Active Substance: IXAZOMIB CITRATE
     Indication: PLASMA CELL MYELOMA
     Dosage: 3 MG, UNK
     Route: 048
     Dates: start: 20180511, end: 20180611

REACTIONS (3)
  - Drug dose omission [Unknown]
  - Hypoaesthesia oral [Unknown]
  - Myalgia [Unknown]

NARRATIVE: CASE EVENT DATE: 20180627
